FAERS Safety Report 13164036 (Version 2)
Quarter: 2017Q2

REPORT INFORMATION
  Report Type: Spontaneous
  Country: GB (occurrence: GB)
  Receive Date: 20170130
  Receipt Date: 20170619
  Transmission Date: 20170830
  Serious: Yes (Hospitalization, Other)
  Sender: FDA-Public Use
  Company Number: GB-PFIZER INC-2017031607

PATIENT
  Age: 70 Year
  Sex: Female

DRUGS (10)
  1. FENTANYL. [Suspect]
     Active Substance: FENTANYL
     Dosage: EXTRA 50 UG FENTANYL TO TAKE IN ADDITION TO HER 100 MCG
     Dates: start: 201012
  2. FENTANYL. [Suspect]
     Active Substance: FENTANYL
     Dosage: 100 UG, DAILY
  3. TRAMADOL. [Concomitant]
     Active Substance: TRAMADOL
     Dosage: UNK
  4. FENTANYL. [Suspect]
     Active Substance: FENTANYL
     Dosage: 20 100 UG, FENTANYL PATCHES EVERY 2 MONTHS
  5. FENTANYL. [Suspect]
     Active Substance: FENTANYL
     Dosage: 14 100 MG
     Dates: start: 201407
  6. FENTANYL. [Suspect]
     Active Substance: FENTANYL
     Dosage: 100 UG PATCHES
  7. MIRTAZAPINE. [Concomitant]
     Active Substance: MIRTAZAPINE
     Dosage: 15 MG, DAILY
  8. ORAMORPH [Concomitant]
     Active Substance: MORPHINE SULFATE
     Indication: BIOPSY LYMPH GLAND
  9. MIRTAZAPINE. [Concomitant]
     Active Substance: MIRTAZAPINE
     Dosage: 2 45 MG
  10. ORAMORPH [Concomitant]
     Active Substance: MORPHINE SULFATE
     Indication: BREAST CONSERVING SURGERY
     Dosage: 20 ML, DAILY
     Route: 048

REACTIONS (3)
  - Suicide attempt [Unknown]
  - Hypersomnia [Unknown]
  - Intentional overdose [Unknown]
